FAERS Safety Report 20658555 (Version 1)
Quarter: 2022Q1

REPORT INFORMATION
  Report Type: Spontaneous
  Country: US (occurrence: None)
  Receive Date: 20220330
  Receipt Date: 20220330
  Transmission Date: 20220423
  Serious: Yes (Other)
  Sender: FDA-Public Use
  Company Number: None

PATIENT
  Age: 32 Year
  Sex: Male

DRUGS (4)
  1. MILK OF MAGNESIA [Suspect]
     Active Substance: MAGNESIUM HYDROXIDE
     Indication: Constipation
  2. ALBUTEROL [Concomitant]
     Active Substance: ALBUTEROL
  3. adrovent [Concomitant]
  4. vivonex T.E.N [Concomitant]

REACTIONS (2)
  - Muscle spasms [None]
  - Abdominal distension [None]

NARRATIVE: CASE EVENT DATE: 20220314
